FAERS Safety Report 10423769 (Version 1)
Quarter: 2014Q3

REPORT INFORMATION
  Report Type: Spontaneous
  Country: PA (occurrence: PA)
  Receive Date: 20140902
  Receipt Date: 20140902
  Transmission Date: 20150326
  Serious: Yes (Life-Threatening)
  Sender: FDA-Public Use
  Company Number: PA-SA-2014SA117169

PATIENT
  Age: 45 Year
  Sex: Female

DRUGS (1)
  1. ALLEGRA-D [Suspect]
     Active Substance: FEXOFENADINE\PSEUDOEPHEDRINE
     Indication: SNEEZING
     Route: 048

REACTIONS (2)
  - Throat tightness [Unknown]
  - Anaphylactic reaction [Unknown]
